FAERS Safety Report 6016856-5 (Version None)
Quarter: 2008Q4

REPORT INFORMATION
  Report Type: 
  Country: None (occurrence: None)
  Receive Date: 20081219
  Receipt Date: 20081209
  Transmission Date: 20090506
  Serious: No
  Sender: FDA-Public Use
  Company Number: 005218

PATIENT
  Age: 39 Year
  Sex: Male

DRUGS (10)
  1. BUSULFEX [Suspect]
     Indication: STEM CELL TRANSPLANT
     Dosage: 8 ML, TID; 8 ML, QID, INTRAVENOUS; 8 ML, TID, INTRAVENOUS
     Route: 042
     Dates: start: 20061103, end: 20061103
  2. BUSULFEX [Suspect]
     Indication: STEM CELL TRANSPLANT
     Dosage: 8 ML, TID; 8 ML, QID, INTRAVENOUS; 8 ML, TID, INTRAVENOUS
     Route: 042
     Dates: start: 20061104, end: 20061104
  3. BUSULFEX [Suspect]
     Indication: STEM CELL TRANSPLANT
     Dosage: 8 ML, TID; 8 ML, QID, INTRAVENOUS; 8 ML, TID, INTRAVENOUS
     Route: 042
     Dates: start: 20061102, end: 20081102
  4. METHOTREXATE [Suspect]
  5. FLUDARABINE PHOSPHATE [Concomitant]
  6. DEPAKENE [Concomitant]
  7. ANTILYMPHOCYTE IMMUNOGLOBULIN (RABBIT)(ANTILYMPHOCYTE IMMUNOGLOBULIN ( [Concomitant]
  8. NEUTROGIN (LENOGRASTIM) [Concomitant]
  9. CYCLOSPORINE [Concomitant]
  10. MORPHINE HYDROCHLORIDE [Suspect]

REACTIONS (11)
  - ANOREXIA [None]
  - BONE MARROW TRANSPLANT [None]
  - BONE MARROW TRANSPLANT REJECTION [None]
  - CONSTIPATION [None]
  - DIARRHOEA [None]
  - GAMMA-GLUTAMYLTRANSFERASE INCREASED [None]
  - HYPERTENSION [None]
  - INFECTION [None]
  - NAUSEA [None]
  - STOMATITIS [None]
  - VOMITING [None]
